FAERS Safety Report 4694435-X (Version None)
Quarter: 2005Q2

REPORT INFORMATION
  Report Type: 
  Country: None (occurrence: None)
  Receive Date: 20050620
  Receipt Date: 20050610
  Transmission Date: 20051028
  Serious: Yes (Hospitalization)
  Sender: FDA-Public Use
  Company Number: PHRM2005FR01828

PATIENT
  Age: 74 Year
  Sex: Female
  Weight: 80 kg

DRUGS (3)
  1. KERLONE [Suspect]
     Indication: CARDIAC FAILURE
     Route: 048
     Dates: end: 20050414
  2. COTAREG [Suspect]
     Indication: ESSENTIAL HYPERTENSION
     Route: 048
     Dates: end: 20050407
  3. FLECAINE [Suspect]
     Indication: CARDIAC FAILURE
     Route: 048
     Dates: end: 20050408

REACTIONS (4)
  - DYSPNOEA [None]
  - HYPOCAPNIA [None]
  - HYPOXIA [None]
  - INTERSTITIAL LUNG DISEASE [None]
